FAERS Safety Report 15448160 (Version 1)
Quarter: 2018Q3

REPORT INFORMATION
  Report Type: Spontaneous
  Country: US (occurrence: US)
  Receive Date: 20180928
  Receipt Date: 20180928
  Transmission Date: 20181010
  Serious: No
  Sender: FDA-Public Use
  Company Number: US-ASTRAZENECA-2018SF24296

PATIENT
  Age: 17015 Day
  Sex: Male

DRUGS (5)
  1. QUETIAPINE. [Suspect]
     Active Substance: QUETIAPINE
     Indication: DELUSION
     Route: 048
     Dates: start: 201805, end: 201806
  2. QUETIAPINE. [Suspect]
     Active Substance: QUETIAPINE
     Indication: SLEEP DISORDER
     Route: 048
     Dates: start: 201805, end: 201806
  3. DULCOLAX NOS [Concomitant]
     Active Substance: BISACODYL OR DOCUSATE SODIUM
     Indication: ABNORMAL FAECES
  4. QUETIAPINE. [Suspect]
     Active Substance: QUETIAPINE
     Indication: DELUSION
     Route: 048
     Dates: start: 201806
  5. QUETIAPINE. [Suspect]
     Active Substance: QUETIAPINE
     Indication: SLEEP DISORDER
     Route: 048
     Dates: start: 201806

REACTIONS (8)
  - Eye pain [Unknown]
  - Off label use [Unknown]
  - Feeling abnormal [Unknown]
  - Product use in unapproved indication [Unknown]
  - Hyperhidrosis [Not Recovered/Not Resolved]
  - Ammonia increased [Unknown]
  - Skin discolouration [Not Recovered/Not Resolved]
  - Drug ineffective [Unknown]

NARRATIVE: CASE EVENT DATE: 201806
